FAERS Safety Report 5022408-6 (Version None)
Quarter: 2006Q2

REPORT INFORMATION
  Report Type: 
  Country: None (occurrence: None)
  Receive Date: 20060605
  Receipt Date: 20060522
  Transmission Date: 20061013
  Serious: Yes (Life-Threatening)
  Sender: FDA-Public Use
  Company Number: 2006046807

PATIENT
  Age: 46 Year
  Sex: Female
  Weight: 64 kg

DRUGS (2)
  1. CYTOTEC [Suspect]
     Indication: ABORTION INDUCED
     Dosage: (200 MCG), ORAL
     Route: 048
     Dates: start: 20060227, end: 20060228
  2. OFLOXACIN [Concomitant]

REACTIONS (9)
  - ANAEMIA [None]
  - ESCHERICHIA URINARY TRACT INFECTION [None]
  - LEUKOCYTOSIS [None]
  - LYMPHOPENIA [None]
  - OVERDOSE [None]
  - PYELONEPHRITIS [None]
  - RENAL FAILURE [None]
  - SHOCK [None]
  - TACHYCARDIA [None]
